FAERS Safety Report 22114253 (Version 1)
Quarter: 2023Q1

REPORT INFORMATION
  Report Type: Spontaneous
  Country: US (occurrence: None)
  Receive Date: 20230317
  Receipt Date: 20230317
  Transmission Date: 20230417
  Serious: Yes (Death, Other)
  Sender: FDA-Public Use
  Company Number: None

PATIENT
  Age: 78 Year
  Sex: Male
  Weight: 89.5 kg

DRUGS (1)
  1. YESCARTA [Suspect]
     Active Substance: AXICABTAGENE CILOLEUCEL
     Indication: Diffuse large B-cell lymphoma recurrent
     Dosage: FREQUENCY : ONCE;?
     Route: 042
     Dates: start: 20221024, end: 20221024

REACTIONS (7)
  - Cytokine release syndrome [None]
  - Lethargy [None]
  - Dysgraphia [None]
  - Immune effector cell-associated neurotoxicity syndrome [None]
  - Speech disorder [None]
  - Nervous system disorder [None]
  - Mental impairment [None]

NARRATIVE: CASE EVENT DATE: 20221116
